FAERS Safety Report 17598166 (Version 1)
Quarter: 2020Q1

REPORT INFORMATION
  Report Type: Spontaneous
  Country: IT (occurrence: IT)
  Receive Date: 20200330
  Receipt Date: 20200330
  Transmission Date: 20200409
  Serious: Yes (Hospitalization)
  Sender: FDA-Public Use
  Company Number: IT-ACCORD-177558

PATIENT
  Age: 33 Year
  Sex: Male
  Weight: 90 kg

DRUGS (3)
  1. METHOTREXATE. [Suspect]
     Active Substance: METHOTREXATE
     Indication: ACUTE LEUKAEMIA
     Route: 042
     Dates: start: 20191206, end: 20191206
  2. ETOPOSIDE. [Suspect]
     Active Substance: ETOPOSIDE
     Indication: LEUKAEMIA
     Dates: start: 20191209, end: 20191210
  3. ARACYTIN [Suspect]
     Active Substance: CYTARABINE
     Indication: LEUKAEMIA
     Route: 042
     Dates: start: 20191210, end: 20191210

REACTIONS (3)
  - Dermo-hypodermitis [Recovering/Resolving]
  - Epididymitis [Recovering/Resolving]
  - Urosepsis [Recovering/Resolving]

NARRATIVE: CASE EVENT DATE: 20191222
